FAERS Safety Report 14254228 (Version 1)
Quarter: 2017Q4

REPORT INFORMATION
  Report Type: Spontaneous
  Country: US (occurrence: US)
  Receive Date: 20171206
  Receipt Date: 20171206
  Transmission Date: 20180321
  Serious: Yes (Other)
  Sender: FDA-Public Use
  Company Number: US-TEVA-2017-US-829920

PATIENT
  Sex: Female

DRUGS (1)
  1. PRAZOSIN HYDROCHLORIDE. [Suspect]
     Active Substance: PRAZOSIN HYDROCHLORIDE

REACTIONS (4)
  - Mental impairment [Unknown]
  - Blindness [Unknown]
  - Hot flush [Unknown]
  - Ocular hyperaemia [Unknown]
